FAERS Safety Report 9734714 (Version 1)
Quarter: 2013Q4

REPORT INFORMATION
  Report Type: Spontaneous
  Country: PL (occurrence: PL)
  Receive Date: 20131206
  Receipt Date: 20131206
  Transmission Date: 20140711
  Serious: Yes (Other)
  Sender: FDA-Public Use
  Company Number: PL-ROCHE-1312663

PATIENT
  Sex: Female

DRUGS (4)
  1. CELLCEPT [Suspect]
     Indication: PRODUCT USED FOR UNKNOWN INDICATION
     Route: 065
  2. CELLCEPT [Suspect]
     Route: 065
  3. PROGRAF [Concomitant]
  4. ZENAPAX [Concomitant]

REACTIONS (2)
  - Leukopenia [Recovered/Resolved]
  - Transplant rejection [Recovered/Resolved]
